FAERS Safety Report 5789193-1 (Version None)
Quarter: 2008Q2

REPORT INFORMATION
  Report Type: 
  Country: None (occurrence: None)
  Receive Date: 20080626
  Receipt Date: 20071211
  Transmission Date: 20081010
  Serious: No
  Sender: FDA-Public Use
  Company Number: US-ASTRAZENECA-2007UW28208

PATIENT
  Age: 5 Year
  Sex: Male
  Weight: 25.4 kg

DRUGS (2)
  1. PULMICORT-100 [Suspect]
     Indication: ASTHMA
     Route: 055
     Dates: start: 20071101
  2. PULMICORT-100 [Suspect]
     Indication: COUGH
     Route: 055
     Dates: start: 20071101

REACTIONS (2)
  - INCREASED APPETITE [None]
  - WEIGHT INCREASED [None]
